FAERS Safety Report 6878625-3 (Version None)
Quarter: 2010Q3

REPORT INFORMATION
  Report Type: 
  Country: None (occurrence: None)
  Receive Date: 20100728
  Receipt Date: 20100714
  Transmission Date: 20110219
  Serious: Yes (Hospitalization)
  Sender: FDA-Public Use
  Company Number: A0866984A

PATIENT
  Age: 59 Year
  Sex: Male

DRUGS (22)
  1. AVANDIA [Suspect]
  2. ASPIRIN [Concomitant]
  3. PLAVIX [Concomitant]
  4. COUMADIN [Concomitant]
  5. LOPRESSOR [Concomitant]
  6. TRICOR [Concomitant]
  7. FOLIC ACID [Concomitant]
  8. THIAMINE [Concomitant]
  9. DITROPAN XL [Concomitant]
  10. STARLIX [Concomitant]
  11. LANTUS [Concomitant]
  12. MEVACOR [Concomitant]
  13. XANAX [Concomitant]
  14. FLOVENT [Concomitant]
  15. NORVASC [Concomitant]
  16. LOTENSIN [Concomitant]
  17. CARDIZEM CD [Concomitant]
  18. NEXIUM [Concomitant]
  19. CELEBREX [Concomitant]
  20. VENTOLIN [Concomitant]
  21. GLUCOPHAGE [Concomitant]
  22. NITROGLYCERIN [Concomitant]

REACTIONS (2)
  - GOUT [None]
  - MYOCARDIAL INFARCTION [None]
